FAERS Safety Report 4951228-3 (Version None)
Quarter: 2006Q1

REPORT INFORMATION
  Report Type: 
  Country: None (occurrence: None)
  Receive Date: 20060316
  Receipt Date: 20060310
  Transmission Date: 20060701
  Serious: Yes (Death)
  Sender: FDA-Public Use
  Company Number: 2006-139590-NL

PATIENT
  Age: 41 Year
  Sex: Male

DRUGS (4)
  1. DANAPAROID SODIUM [Suspect]
     Indication: DISSEMINATED INTRAVASCULAR COAGULATION
     Dosage: 1250 ANTI_XA BID
     Route: 042
     Dates: start: 20050727, end: 20050806
  2. ENOCITABINE [Concomitant]
  3. IDARUBICIN HCL [Concomitant]
  4. RAMOSETRON HYDROCHLORIDE [Concomitant]

REACTIONS (4)
  - CEREBRAL HAEMORRHAGE [None]
  - FIBRIN DEGRADATION PRODUCTS INCREASED [None]
  - PLATELET COUNT DECREASED [None]
  - SUBARACHNOID HAEMORRHAGE [None]
